FAERS Safety Report 25454947 (Version 2)
Quarter: 2025Q3

REPORT INFORMATION
  Report Type: Report from Study
  Country: US (occurrence: US)
  Receive Date: 20250619
  Receipt Date: 20250812
  Transmission Date: 20251021
  Serious: Yes (Hospitalization, Other)
  Sender: SUNOVION
  Company Number: US-SMPA-2025SPA006596AA

PATIENT
  Age: 79 Year
  Sex: Male

DRUGS (2)
  1. ORGOVYX [Suspect]
     Active Substance: RELUGOLIX
     Indication: Prostate cancer
     Dosage: 120 MG, QD
     Route: 048
     Dates: start: 20250409
  2. ORGOVYX [Suspect]
     Active Substance: RELUGOLIX
     Route: 048

REACTIONS (5)
  - Pneumonia [Unknown]
  - Hepatic enzyme increased [Recovered/Resolved]
  - Feeling abnormal [Unknown]
  - Feeling hot [Unknown]
  - Incorrect dose administered [Recovered/Resolved]
